FAERS Safety Report 4281240-1 (Version None)
Quarter: 2004Q1

REPORT INFORMATION
  Report Type: 
  Country: None (occurrence: None)
  Receive Date: 20040113
  Receipt Date: 20031208
  Transmission Date: 20041129
  Serious: No
  Sender: FDA-Public Use
  Company Number: A03200302909

PATIENT
  Age: 59 Year
  Sex: Male

DRUGS (5)
  1. UROXATRAL [Suspect]
     Indication: BENIGN PROSTATIC HYPERPLASIA
     Dosage: 10 MG QD - ORAL
     Route: 048
     Dates: start: 20031202
  2. ESOMEPRAZOLE [Concomitant]
  3. CAPTOPRIL [Concomitant]
  4. PRAVASTATIN SODIUM [Concomitant]
  5. VITAMINS NOS [Concomitant]

REACTIONS (3)
  - DIZZINESS [None]
  - NECK PAIN [None]
  - PAIN IN EXTREMITY [None]
